FAERS Safety Report 8813270 (Version 1)
Quarter: 2012Q4

REPORT INFORMATION
  Report Type: 
  Country: US (occurrence: US)
  Receive Date: 20120927
  Receipt Date: 20120927
  Transmission Date: 20130627
  Serious: No
  Sender: FDA-Public Use
  Company Number: US-AMGEN-USASP2012044469

PATIENT
  Age: 65 Year
  Sex: Female

DRUGS (5)
  1. PROLIA [Suspect]
     Indication: OSTEOPOROSIS POSTMENOPAUSAL
     Dosage: 60 mg, q6mo
     Dates: start: 20120524
  2. PAXIL [Concomitant]
     Dosage: UNK
  3. ZEBETA [Concomitant]
     Indication: EXTRASYSTOLES
     Dosage: UNK
  4. ZEBETA [Concomitant]
     Indication: MITRAL VALVE PROLAPSE
  5. LEVOTHYROXINE [Concomitant]
     Dosage: UNK

REACTIONS (6)
  - Extrasystoles [Not Recovered/Not Resolved]
  - Headache [Recovered/Resolved]
  - Dysgeusia [Recovered/Resolved]
  - Dry mouth [Not Recovered/Not Resolved]
  - Arthropod bite [Not Recovered/Not Resolved]
  - Stress [Not Recovered/Not Resolved]
